FAERS Safety Report 25045912 (Version 1)
Quarter: 2025Q1

REPORT INFORMATION
  Report Type: Spontaneous
  Country: FR (occurrence: FR)
  Receive Date: 20250306
  Receipt Date: 20250306
  Transmission Date: 20250408
  Serious: Yes (Life-Threatening, Hospitalization)
  Sender: BOEHRINGER INGELHEIM
  Company Number: None

PATIENT
  Age: 30 Day
  Sex: Female
  Weight: 3.16 kg

DRUGS (7)
  1. VIRAMUNE [Suspect]
     Active Substance: NEVIRAPINE
     Indication: Prophylaxis against HIV infection
     Dates: start: 20250108, end: 20250108
  2. EPIVIR [Suspect]
     Active Substance: LAMIVUDINE
     Indication: Prophylaxis against HIV infection
     Dates: start: 20250108, end: 20250207
  3. RETROVIR [Suspect]
     Active Substance: ZIDOVUDINE
     Indication: Prophylaxis against HIV infection
     Dates: start: 20250108
  4. RETROVIR [Suspect]
     Active Substance: ZIDOVUDINE
     Dates: start: 20250108, end: 20250204
  5. RETROVIR [Suspect]
     Active Substance: ZIDOVUDINE
     Dates: start: 20250205, end: 20250207
  6. TIVICAY [Suspect]
     Active Substance: DOLUTEGRAVIR SODIUM
     Indication: Blood HIV RNA
     Dates: start: 20241224, end: 20250108
  7. TRUVADA [Suspect]
     Active Substance: EMTRICITABINE\TENOFOVIR DISOPROXIL FUMARATE
     Indication: Blood HIV RNA
     Dates: start: 20241224, end: 20250108

REACTIONS (2)
  - Metabolic acidosis [Recovered/Resolved]
  - Maternal exposure during pregnancy [Recovered/Resolved]

NARRATIVE: CASE EVENT DATE: 20250207
